FAERS Safety Report 8814196 (Version 5)
Quarter: 2015Q4

REPORT INFORMATION
  Report Type: Spontaneous
  Country: US (occurrence: US)
  Receive Date: 20120928
  Receipt Date: 20151124
  Transmission Date: 20160305
  Serious: Yes (Hospitalization, Other)
  Sender: FDA-Public Use
  Company Number: US-BAYER-2012-099528

PATIENT
  Age: 42 Year
  Sex: Female
  Weight: 77.1 kg

DRUGS (10)
  1. XANAX [Concomitant]
     Active Substance: ALPRAZOLAM
     Dosage: 0.5 MG, HS PRN
     Route: 048
  2. AMOXICILLIN. [Concomitant]
     Active Substance: AMOXICILLIN
     Dosage: 500 MG, TID, FOR 5 DAYS
     Dates: start: 20091001
  3. CILOXAN [Concomitant]
     Active Substance: CIPROFLOXACIN HYDROCHLORIDE
     Dosage: UNK UNK, Q4HR
     Route: 047
     Dates: start: 20091001
  4. VITAMIN C [Concomitant]
     Active Substance: ASCORBIC ACID
  5. DURATUSS [Concomitant]
     Active Substance: GUAIFENESIN\PSEUDOEPHEDRINE HYDROCHLORIDE
     Dosage: 600-120MG 1 TABLET, BID
     Dates: start: 20091001
  6. YASMIN [Suspect]
     Active Substance: DROSPIRENONE\ETHINYL ESTRADIOL
  7. NASONEX [Concomitant]
     Active Substance: MOMETASONE FUROATE
     Dosage: 50 MCG/24HR, QD
     Route: 045
  8. OCELLA [Suspect]
     Active Substance: DROSPIRENONE\ETHINYL ESTRADIOL
     Dosage: UNK
     Dates: start: 200906, end: 200910
  9. AUGMENTIN [Concomitant]
     Active Substance: AMOXICILLIN\CLAVULANATE POTASSIUM
     Dosage: 875-125 MG, BID
     Dates: start: 20091001
  10. TORADOL [Concomitant]
     Active Substance: KETOROLAC TROMETHAMINE

REACTIONS (12)
  - Embolism arterial [None]
  - Injury [Recovering/Resolving]
  - Pain [None]
  - General physical health deterioration [Recovering/Resolving]
  - Anxiety [None]
  - Anhedonia [None]
  - Depression [None]
  - Post-traumatic stress disorder [None]
  - Cerebrovascular accident [Recovering/Resolving]
  - Emotional distress [None]
  - Pain [Recovering/Resolving]
  - Optic nerve injury [None]

NARRATIVE: CASE EVENT DATE: 20091001
